FAERS Safety Report 8135332-7 (Version None)
Quarter: 2012Q1

REPORT INFORMATION
  Report Type: 
  Country: None (occurrence: None)
  Receive Date: 20120214
  Receipt Date: 20120203
  Transmission Date: 20120608
  Serious: Yes (Hospitalization)
  Sender: FDA-Public Use
  Company Number: TR-BRACCO-000038

PATIENT
  Age: 74 Year
  Sex: Female

DRUGS (2)
  1. BARIUM SULFATE [Suspect]
     Indication: OESOPHAGOSCOPY
  2. BARIUM SULFATE [Suspect]
     Indication: DYSPHAGIA

REACTIONS (4)
  - TACHYPNOEA [None]
  - ASPIRATION [None]
  - GENERAL PHYSICAL HEALTH DETERIORATION [None]
  - DYSPNOEA [None]
